FAERS Safety Report 17550464 (Version 2)
Quarter: 2020Q2

REPORT INFORMATION
  Report Type: Spontaneous
  Country: US (occurrence: US)
  Receive Date: 20200317
  Receipt Date: 20200406
  Transmission Date: 20200713
  Serious: Yes (Death, Hospitalization)
  Sender: FDA-Public Use
  Company Number: US-PFIZER INC-2020115837

PATIENT
  Age: 83 Year
  Sex: Male

DRUGS (1)
  1. VYNDAMAX [Suspect]
     Active Substance: TAFAMIDIS
     Indication: AMYLOIDOSIS
     Dosage: 61 MG, UNK

REACTIONS (2)
  - Death [Fatal]
  - Kidney infection [Unknown]
